FAERS Safety Report 4665488-X (Version None)
Quarter: 2005Q2

REPORT INFORMATION
  Report Type: 
  Country: None (occurrence: None)
  Receive Date: 20050519
  Receipt Date: 20041119
  Transmission Date: 20051028
  Serious: Yes (Other)
  Sender: FDA-Public Use
  Company Number: US-BRISTOL-MYERS SQUIBB COMPANY-12771432

PATIENT

DRUGS (5)
  1. CYTOXAN [Suspect]
     Dates: start: 20041118, end: 20041118
  2. MESNA [Concomitant]
     Dates: start: 20041118, end: 20041118
  3. VINCRISTINE [Concomitant]
     Indication: PREMEDICATION
     Dates: start: 20041118, end: 20041118
  4. DECADRON [Concomitant]
     Indication: PREMEDICATION
     Dates: start: 20041118, end: 20041118
  5. ZOFRAN [Concomitant]
     Indication: PREMEDICATION
     Dates: start: 20041118, end: 20041118

REACTIONS (1)
  - HYPERSENSITIVITY [None]
